FAERS Safety Report 4743925-X (Version None)
Quarter: 2005Q3

REPORT INFORMATION
  Report Type: 
  Country: None (occurrence: None)
  Receive Date: 20050809
  Receipt Date: 20050803
  Transmission Date: 20060218
  Serious: Yes (Hospitalization)
  Sender: FDA-Public Use
  Company Number: 006#3#2005-00033

PATIENT
  Age: 49 Year
  Sex: Male

DRUGS (5)
  1. EDEX [Suspect]
     Indication: ERECTILE DYSFUNCTION
     Dosage: 1.N.R.
     Route: 042
  2. CORVASAL (MOLSIDOMINE) [Concomitant]
  3. COZAAR [Concomitant]
  4. INDAPAMIDE [Concomitant]
  5. SIMVASTATIN [Concomitant]

REACTIONS (9)
  - ANURIA [None]
  - BIOPSY KIDNEY ABNORMAL [None]
  - FLANK PAIN [None]
  - HAEMODIALYSIS [None]
  - NEPHROANGIOSCLEROSIS [None]
  - OBSTRUCTION [None]
  - OLIGURIA [None]
  - RENAL FAILURE ACUTE [None]
  - RENAL TUBULAR DISORDER [None]
